FAERS Safety Report 20512770 (Version 1)
Quarter: 2022Q1

REPORT INFORMATION
  Report Type: Spontaneous
  Country: JP (occurrence: JP)
  Receive Date: 20220224
  Receipt Date: 20220224
  Transmission Date: 20220423
  Serious: Yes (Other)
  Sender: FDA-Public Use
  Company Number: JP-NOVARTISPH-NVSJ2022JP003264

PATIENT
  Age: 73 Year
  Sex: Male

DRUGS (1)
  1. METFORMIN HYDROCHLORIDE\VILDAGLIPTIN [Suspect]
     Active Substance: METFORMIN HYDROCHLORIDE\VILDAGLIPTIN
     Indication: Product used for unknown indication
     Dosage: 1DF:METFORMIN HYDROCHLORIDE:500MG,VILDAGLIPTIN:50MG
     Route: 048
     Dates: start: 201712

REACTIONS (2)
  - Hypoglycaemic encephalopathy [Unknown]
  - Hypoglycaemia [Unknown]
